FAERS Safety Report 16186006 (Version 2)
Quarter: 2021Q4

REPORT INFORMATION
  Report Type: Spontaneous
  Country: BR (occurrence: BR)
  Receive Date: 20190411
  Receipt Date: 20211028
  Transmission Date: 20220303
  Serious: Yes (Other)
  Sender: FDA-Public Use
  Company Number: BR-PFIZER INC-2010046443

PATIENT
  Age: 24 Year
  Sex: Male
  Weight: 120 kg

DRUGS (6)
  1. GEODON [Interacting]
     Active Substance: ZIPRASIDONE HYDROCHLORIDE\ZIPRASIDONE MESYLATE
     Indication: Anxiety
     Dosage: 80 MG, 2X/DAY
     Route: 048
     Dates: start: 2002
  2. GEODON [Interacting]
     Active Substance: ZIPRASIDONE HYDROCHLORIDE\ZIPRASIDONE MESYLATE
     Indication: Schizophrenia
     Dosage: 80 MG, 2X/DAY
     Route: 048
  3. GEODON [Interacting]
     Active Substance: ZIPRASIDONE HYDROCHLORIDE\ZIPRASIDONE MESYLATE
     Indication: Panic disorder
     Dosage: 2 DF, DAILY
  4. GEODON [Interacting]
     Active Substance: ZIPRASIDONE HYDROCHLORIDE\ZIPRASIDONE MESYLATE
     Indication: Autism spectrum disorder
  5. RIVOTRIL [Concomitant]
     Active Substance: CLONAZEPAM
     Indication: Relaxation therapy
     Dosage: 2 TABLETS, DAILY
     Dates: start: 2011
  6. RIVOTRIL [Concomitant]
     Active Substance: CLONAZEPAM
     Dosage: UNK

REACTIONS (20)
  - Agitation [Recovered/Resolved]
  - Dysentery [Unknown]
  - Nasopharyngitis [Not Recovered/Not Resolved]
  - Influenza [Recovered/Resolved]
  - Nasal congestion [Recovered/Resolved]
  - Pain [Not Recovered/Not Resolved]
  - Dental caries [Unknown]
  - Toothache [Not Recovered/Not Resolved]
  - Vitamin D deficiency [Unknown]
  - Abdominal pain [Unknown]
  - Feeling abnormal [Unknown]
  - Malaise [Unknown]
  - Dysphagia [Unknown]
  - Vomiting [Unknown]
  - Drug interaction [Unknown]
  - Crying [Unknown]
  - Nervousness [Unknown]
  - Intentional product misuse [Recovered/Resolved]
  - Product dose omission issue [Unknown]
  - Intentional product misuse [Unknown]

NARRATIVE: CASE EVENT DATE: 20100101
